FAERS Safety Report 10225450 (Version 2)
Quarter: 2014Q2

REPORT INFORMATION
  Report Type: Spontaneous
  Country: US (occurrence: US)
  Receive Date: 20140609
  Receipt Date: 20140609
  Transmission Date: 20141212
  Serious: No
  Sender: FDA-Public Use
  Company Number: US-ASTELLAS-2014US003231

PATIENT
  Age: 2 Year
  Sex: Female

DRUGS (1)
  1. PROGRAF [Suspect]
     Indication: FOCAL SEGMENTAL GLOMERULOSCLEROSIS
     Route: 048

REACTIONS (4)
  - Off label use [Unknown]
  - Diarrhoea [Recovered/Resolved]
  - Abdominal pain upper [Recovered/Resolved]
  - Nausea [Recovered/Resolved]
